FAERS Safety Report 8174710-7 (Version None)
Quarter: 2012Q1

REPORT INFORMATION
  Report Type: 
  Country: None (occurrence: None)
  Receive Date: 20120229
  Receipt Date: 20120221
  Transmission Date: 20120608
  Serious: Yes (Death, Hospitalization)
  Sender: FDA-Public Use
  Company Number: US-GLAXOSMITHKLINE-A0967917A

PATIENT
  Age: 67 Year
  Sex: Female

DRUGS (3)
  1. ARIXTRA [Suspect]
     Indication: PULMONARY THROMBOSIS
     Dosage: 10MG PER DAY
     Route: 058
     Dates: start: 20120101
  2. OXYCONTIN [Concomitant]
  3. LISINOPRIL [Concomitant]

REACTIONS (4)
  - MULTI-ORGAN FAILURE [None]
  - ACUTE RESPIRATORY FAILURE [None]
  - SEPSIS [None]
  - ACUTE ABDOMEN [None]
